FAERS Safety Report 6087729-7 (Version None)
Quarter: 2009Q1

REPORT INFORMATION
  Report Type: 
  Country: None (occurrence: None)
  Receive Date: 20090210
  Receipt Date: 20081223
  Transmission Date: 20090719
  Serious: No
  Sender: FDA-Public Use
  Company Number: WAES 0812USA04825

PATIENT
  Age: 87 Year
  Sex: Male

DRUGS (5)
  1. JANUVIA [Suspect]
     Indication: DIABETES MELLITUS
     Dosage: 100 MG/DAILY/PO
     Route: 048
     Dates: start: 20081222
  2. CRESTOR [Concomitant]
  3. PREVACID [Concomitant]
  4. SYNTHROID [Concomitant]
  5. CLONAZEPAM [Concomitant]

REACTIONS (2)
  - DIZZINESS [None]
  - NAUSEA [None]
